FAERS Safety Report 7088737-X (Version None)
Quarter: 2010Q4

REPORT INFORMATION
  Report Type: 
  Country: None (occurrence: None)
  Receive Date: 20101108
  Receipt Date: 20101027
  Transmission Date: 20110411
  Serious: Yes (Other)
  Sender: FDA-Public Use
  Company Number: US-US-EMD SERONO, INC.-7024966

PATIENT
  Sex: Male

DRUGS (4)
  1. REBIF [Suspect]
     Indication: PRODUCT USED FOR UNKNOWN INDICATION
     Route: 058
     Dates: start: 20100921
  2. HEART PILLS [Concomitant]
  3. NITROGLYCERIN [Concomitant]
  4. UNSPECIFIED MEDICATION [Concomitant]
     Indication: PREMEDICATION

REACTIONS (7)
  - ASTHENIA [None]
  - DYSPNOEA [None]
  - EYE PAIN [None]
  - HAEMOPTYSIS [None]
  - PAIN [None]
  - PYREXIA [None]
  - VISION BLURRED [None]
